FAERS Safety Report 12203498 (Version 7)
Quarter: 2017Q1

REPORT INFORMATION
  Report Type: Spontaneous
  Country: US (occurrence: US)
  Receive Date: 20160323
  Receipt Date: 20170124
  Transmission Date: 20170428
  Serious: Yes (Life-Threatening, Congenital Anomaly, Other)
  Sender: FDA-Public Use
  Company Number: PHEH2016US006902

PATIENT
  Sex: Female

DRUGS (1)
  1. ZOFRAN ODT [Suspect]
     Active Substance: ONDANSETRON HYDROCHLORIDE
     Indication: FOETAL EXPOSURE DURING PREGNANCY
     Dosage: MOTHER^S DOSE: 08 MG, PRN
     Route: 064

REACTIONS (29)
  - Congenital tricuspid valve incompetence [Unknown]
  - Congenital anomaly [Not Recovered/Not Resolved]
  - Heart disease congenital [Unknown]
  - Pallor [Unknown]
  - Developmental delay [Unknown]
  - Anxiety [Unknown]
  - Patent ductus arteriosus [Unknown]
  - Cardiogenic shock [Unknown]
  - Anhedonia [Unknown]
  - Atrial septal defect [Unknown]
  - Left-to-right cardiac shunt [Unknown]
  - Congenital hydronephrosis [Unknown]
  - Skin discolouration [Unknown]
  - Neonatal multi-organ failure [Unknown]
  - Mitral valve incompetence [Unknown]
  - Dyspnoea [Unknown]
  - Injury [Not Recovered/Not Resolved]
  - Cardiac failure congestive [Unknown]
  - Atelectasis neonatal [Unknown]
  - Neonatal respiratory distress syndrome [Unknown]
  - Pneumonia [Unknown]
  - Pain [Unknown]
  - Cardiac murmur [Unknown]
  - Foetal exposure during pregnancy [Unknown]
  - Ventricular septal defect [Unknown]
  - Coarctation of the aorta [Unknown]
  - Respiratory rate increased [Unknown]
  - Bronchiolitis [Unknown]
  - Cardiomegaly [Unknown]
